FAERS Safety Report 6644981-4 (Version None)
Quarter: 2010Q1

REPORT INFORMATION
  Report Type: 
  Country: None (occurrence: None)
  Receive Date: 20100322
  Receipt Date: 20100311
  Transmission Date: 20100710
  Serious: Yes (Other)
  Sender: FDA-Public Use
  Company Number: PHHY2010DE15505

PATIENT
  Sex: Male

DRUGS (2)
  1. DAFIRO HCT [Suspect]
     Indication: HYPERTENSION
     Dosage: ONCE DAILY
     Route: 048
  2. ALLOPURINOL [Concomitant]
     Dosage: ONCE DAILY
     Route: 048

REACTIONS (3)
  - CEREBROVASCULAR ACCIDENT [None]
  - HYPOAESTHESIA ORAL [None]
  - SENSORY DISTURBANCE [None]
